FAERS Safety Report 12047458 (Version 1)
Quarter: 2016Q1

REPORT INFORMATION
  Report Type: Spontaneous
  Country: US (occurrence: US)
  Receive Date: 20160208
  Receipt Date: 20160208
  Transmission Date: 20160526
  Serious: No
  Sender: FDA-Public Use
  Company Number: US-INVAGEN PHARMACEUTICALS, INC.-1047473

PATIENT
  Age: 37 Year
  Sex: Female
  Weight: 73.64 kg

DRUGS (3)
  1. GABAPENTIN. [Suspect]
     Active Substance: GABAPENTIN
     Indication: NEUROPATHY PERIPHERAL
     Route: 048
  2. LYRICA [Concomitant]
     Active Substance: PREGABALIN
  3. METHYLPREDNISOLONE ACETATE. [Concomitant]
     Active Substance: METHYLPREDNISOLONE ACETATE

REACTIONS (10)
  - Pain [Unknown]
  - Decreased appetite [Unknown]
  - Pain in extremity [Unknown]
  - Weight increased [Unknown]
  - Peripheral swelling [Unknown]
  - Drug ineffective [Unknown]
  - Nausea [Unknown]
  - Asthenia [Unknown]
  - Lethargy [Unknown]
  - Paraesthesia [Unknown]
